FAERS Safety Report 17372179 (Version 6)
Quarter: 2020Q3

REPORT INFORMATION
  Report Type: Spontaneous
  Country: HR (occurrence: HR)
  Receive Date: 20200205
  Receipt Date: 20200813
  Transmission Date: 20201102
  Serious: Yes (Death, Hospitalization, Other)
  Sender: FDA-Public Use
  Company Number: HR-PFIZER INC-2020047316

PATIENT
  Age: 64 Year
  Sex: Female
  Weight: 67 kg

DRUGS (26)
  1. FILGRASTIM [Suspect]
     Active Substance: FILGRASTIM
     Indication: FEBRILE NEUTROPENIA
     Dosage: UNK
     Route: 065
     Dates: start: 201904
  2. SORBISTERIT [Concomitant]
     Dosage: ONE DOSAGE PER DAY
  3. KYPROLIS [Suspect]
     Active Substance: CARFILZOMIB
     Indication: ADRENAL ADENOMA
     Dosage: 70 MG/M2, UNK
     Dates: start: 20191224, end: 20191224
  4. CYCLOPHOSPHAMIDE. [Concomitant]
     Active Substance: CYCLOPHOSPHAMIDE
     Indication: ADRENAL ADENOMA
     Dosage: UNK
     Dates: start: 20190314
  5. ADENURIC [Concomitant]
     Active Substance: FEBUXOSTAT
     Indication: NEPHROLITHIASIS
     Dosage: 80 MILLIGRAM
     Dates: start: 20191129, end: 20200125
  6. SORTIS [Concomitant]
     Active Substance: ATORVASTATIN
     Dosage: UNK
  7. SODIUM HYDROGEN CARBONATE [Concomitant]
     Active Substance: SODIUM BICARBONATE
     Dosage: 2 X 1/4 TEA?SPOON
  8. PIPERACILLIN AND TAZOBACTAM [Concomitant]
     Active Substance: PIPERACILLIN SODIUM\TAZOBACTAM SODIUM
     Indication: ANTIBIOTIC THERAPY
     Dosage: UNK
     Dates: start: 2019, end: 2019
  9. FOLACIN [FOLIC ACID] [Concomitant]
     Active Substance: FOLIC ACID
     Dosage: 5 MILLIGRAM
  10. PLIVIT D3 [Concomitant]
     Active Substance: CHOLECALCIFEROL
     Dosage: 6 DROPS
  11. LENALIDOMIDE [Concomitant]
     Active Substance: LENALIDOMIDE
     Indication: ADRENAL ADENOMA
     Dosage: UNK
     Dates: start: 20190807
  12. CONCOR [Concomitant]
     Active Substance: BISOPROLOL FUMARATE
     Dosage: 1.25 MILLIGRAM
  13. DARATUMUMAB [Concomitant]
     Active Substance: DARATUMUMAB
     Indication: ADRENAL ADENOMA
     Dosage: UNK
     Dates: start: 20190807
  14. CEPHALEXINE [Concomitant]
     Active Substance: CEPHALEXIN
     Indication: ANTIBIOTIC THERAPY
     Dosage: UNK
     Dates: start: 2019
  15. BYOL COR [Concomitant]
     Active Substance: BISOPROLOL FUMARATE
  16. KYPROLIS [Suspect]
     Active Substance: CARFILZOMIB
     Indication: PLASMA CELL MYELOMA
     Dosage: 20 MG/M2, WEEKLY
     Route: 065
     Dates: start: 20191217
  17. THALIDOMIDE [Concomitant]
     Active Substance: THALIDOMIDE
     Indication: ADRENAL ADENOMA
     Dosage: UNK
     Dates: start: 201905
  18. VIROLEX [ACICLOVIR] [Concomitant]
     Dosage: 200 MILLIGRAM
  19. TARGINACT [Concomitant]
     Active Substance: NALOXONE HYDROCHLORIDE\OXYCODONE HYDROCHLORIDE
     Dosage: 5/ 2.5 MG 2 X 1 TABLET
  20. PERINEVA [Concomitant]
     Active Substance: PERINDOPRIL ERBUMINE
     Dosage: UNK
  21. CLEXANE [Concomitant]
     Active Substance: ENOXAPARIN SODIUM
     Dosage: 0.6 MILLILITER, QD
     Route: 058
  22. CONTROLOC [Concomitant]
     Active Substance: PANTOPRAZOLE SODIUM
     Dosage: 40 MILLIGRAM, QD
  23. PHYSIOTENS [Concomitant]
     Active Substance: MOXONIDINE
     Dosage: 0.2 MG IN THE MORNING + 0.4 MG IN THE EVENING
  24. DEXAMETHASONE. [Concomitant]
     Active Substance: DEXAMETHASONE
     Indication: PLASMA CELL MYELOMA
     Dosage: 80 MG, QWK
     Dates: start: 20190315, end: 20191224
  25. DEXAMETHASONE. [Concomitant]
     Active Substance: DEXAMETHASONE
     Indication: ADRENAL ADENOMA
  26. BORTEZOMIB. [Concomitant]
     Active Substance: BORTEZOMIB
     Indication: ADRENAL ADENOMA
     Dosage: UNK
     Dates: start: 20190314, end: 20190722

REACTIONS (13)
  - Blood pressure increased [Unknown]
  - Renal impairment [Fatal]
  - Light chain analysis increased [Unknown]
  - Spinal fracture [Unknown]
  - Disorientation [Unknown]
  - Thrombotic thrombocytopenic purpura [Fatal]
  - Protein total increased [Unknown]
  - Unresponsive to stimuli [Unknown]
  - Plasma cell leukaemia [Fatal]
  - Light chain analysis abnormal [Unknown]
  - Urinary tract infection pseudomonal [Fatal]
  - Thrombotic microangiopathy [Fatal]
  - Bronchitis [Fatal]

NARRATIVE: CASE EVENT DATE: 2019
